FAERS Safety Report 9700870 (Version 2)
Quarter: 2014Q1

REPORT INFORMATION
  Report Type: Report from Study
  Country: US (occurrence: US)
  Receive Date: 20131121
  Receipt Date: 20140108
  Transmission Date: 20141002
  Serious: Yes (Hospitalization)
  Sender: FDA-Public Use
  Company Number: US-ALEXION PHARMACEUTICALS INC.-A201303697

PATIENT
  Age: 23 Year
  Sex: Female
  Weight: 66 kg

DRUGS (5)
  1. SOLIRIS [Suspect]
     Indication: HAEMOLYTIC URAEMIC SYNDROME
     Dosage: 900 MG, QW X 3 WEEKS
     Route: 042
     Dates: start: 20130326, end: 20130408
  2. SOLIRIS [Suspect]
     Dosage: 1200 MG, Q2W
     Route: 042
     Dates: start: 20130415
  3. NIFEDIPINE [Concomitant]
     Dosage: 30 MG, BID
     Route: 048
     Dates: start: 20130717
  4. ORAL CONTRACEPTIVE NOS [Concomitant]
     Route: 048
  5. CLONIDINE [Concomitant]
     Indication: HYPERTENSION
     Dosage: 0.1 MG, UNK
     Dates: start: 20130904

REACTIONS (4)
  - Cholelithiasis [Recovering/Resolving]
  - Malaise [Unknown]
  - Nasopharyngitis [Unknown]
  - Hypersensitivity [Unknown]
